FAERS Safety Report 4829224-6 (Version None)
Quarter: 2005Q4

REPORT INFORMATION
  Report Type: 
  Country: None (occurrence: None)
  Receive Date: 20051028
  Receipt Date: 20050810
  Transmission Date: 20060501
  Serious: No
  Sender: FDA-Public Use
  Company Number: COT_0071_2005

PATIENT
  Age: 69 Year
  Sex: Female
  Weight: 78.9259 kg

DRUGS (13)
  1. VENTAVIS [Suspect]
     Indication: PULMONARY HYPERTENSION
     Dosage: 5 MCG 7XD IH
     Route: 055
     Dates: start: 20050428
  2. VENTAVIS [Suspect]
     Indication: PULMONARY HYPERTENSION
     Dosage: 5 MCG 7XD IH
     Route: 055
     Dates: start: 20050428
  3. VENTAVIS [Suspect]
     Indication: PULMONARY HYPERTENSION
     Dosage: 2.5 MCG IH
     Route: 055
     Dates: start: 20050101
  4. TRACLEER [Concomitant]
  5. IMDUR [Concomitant]
  6. PREMARIN [Concomitant]
  7. NEURONTIN [Concomitant]
  8. PROTONIX [Concomitant]
  9. LEXAPRO [Concomitant]
  10. NADOLOL [Concomitant]
  11. NITRO-DUR [Concomitant]
  12. ASPIRIN [Concomitant]
  13. COUMADIN [Concomitant]

REACTIONS (3)
  - CHEST PAIN [None]
  - ORAL DISCOMFORT [None]
  - THROAT IRRITATION [None]
